FAERS Safety Report 8707199 (Version 2)
Quarter: 2013Q4

REPORT INFORMATION
  Report Type: Spontaneous
  Country: US (occurrence: US)
  Receive Date: 20120803
  Receipt Date: 20131106
  Transmission Date: 20140711
  Serious: Yes (Other)
  Sender: FDA-Public Use
  Company Number: US-009507513-1207USA010213

PATIENT
  Age: 55 Year
  Sex: Female

DRUGS (9)
  1. ZOCOR [Suspect]
     Route: 048
  2. DRONEDARONE [Suspect]
  3. ATORVASTATIN [Suspect]
  4. FLECAINIDE ACETATE [Suspect]
  5. WARFARIN [Concomitant]
     Dosage: 12.5 MG, UNK
  6. WARFARIN [Concomitant]
     Dosage: 15 MG, UNK
  7. BUDESONIDE (+) FORMOTEROL FUMARATE [Concomitant]
  8. LOSARTAN POTASSIUM [Concomitant]
  9. BISOPROLOL [Concomitant]

REACTIONS (5)
  - Atrial fibrillation [Unknown]
  - Drug ineffective [Unknown]
  - Infarction [Unknown]
  - Gait disturbance [Unknown]
  - Pain in extremity [Unknown]
